FAERS Safety Report 26171842 (Version 1)
Quarter: 2025Q4

REPORT INFORMATION
  Report Type: Report from Study
  Country: JP (occurrence: JP)
  Receive Date: 20251217
  Receipt Date: 20251217
  Transmission Date: 20260118
  Serious: Yes (Death)
  Sender: ABBVIE
  Company Number: JP-ABBVIE-6504161

PATIENT
  Age: 84 Year
  Sex: Male

DRUGS (2)
  1. VYALEV [Suspect]
     Active Substance: FOSCARBIDOPA\FOSLEVODOPA
     Indication: Parkinson^s disease
     Dosage: 0.21 ML/H, DURATION TEXT: ABOUT 9 MONTHS.
     Route: 058
     Dates: start: 20250121
  2. VYALEV [Suspect]
     Active Substance: FOSCARBIDOPA\FOSLEVODOPA
     Route: 058
     Dates: end: 20251213

REACTIONS (6)
  - Death [Fatal]
  - Sense of oppression [Recovered/Resolved]
  - Sense of oppression [Unknown]
  - Sputum abnormal [Unknown]
  - Dyskinesia [Unknown]
  - Superficial vein prominence [Unknown]

NARRATIVE: CASE EVENT DATE: 20250901
